FAERS Safety Report 23599401 (Version 2)
Quarter: 2024Q3

REPORT INFORMATION
  Report Type: Spontaneous
  Country: US (occurrence: US)
  Receive Date: 20240306
  Receipt Date: 20240723
  Transmission Date: 20241017
  Serious: Yes (Hospitalization, Other)
  Sender: TEVA
  Company Number: US-TEVA-VS-3163702

PATIENT

DRUGS (16)
  1. SUCRALFATE [Suspect]
     Active Substance: SUCRALFATE
     Indication: Product used for unknown indication
     Dosage: TWO TABLETS TIMES DAILY AND ONE AT BEDTIME. THAT WAS TAKING 5 TABLETS OF SUCRALFATE WHEN NORMALLY...
     Route: 065
     Dates: start: 2017
  2. METOPROLOL [Suspect]
     Active Substance: METOPROLOL
     Indication: Product used for unknown indication
     Dosage: WAS TAKING 200MG OF METOPROLOL TWICE A DAY
     Route: 065
     Dates: start: 2017
  3. PANTOPRAZOLE [Suspect]
     Active Substance: PANTOPRAZOLE
     Indication: Product used for unknown indication
     Dosage: TWICE AS MUCH AS HAD BEEN TAKING
     Route: 065
     Dates: start: 2017
  4. LISINOPRIL [Concomitant]
     Active Substance: LISINOPRIL
     Indication: Hypertension
     Dosage: AT BEDTIME
     Route: 065
  5. MONTELUKAST [Concomitant]
     Active Substance: MONTELUKAST SODIUM
     Indication: Sinus disorder
     Dosage: AT BEDTIME
     Route: 065
  6. NIFEDIPINE [Concomitant]
     Active Substance: NIFEDIPINE
     Indication: Blood pressure abnormal
     Route: 065
  7. POTASSIUM CHLORIDE [Concomitant]
     Active Substance: POTASSIUM CHLORIDE
     Indication: Product used for unknown indication
     Route: 065
  8. FUROSEMIDE [Concomitant]
     Active Substance: FUROSEMIDE
     Indication: Oedema
     Dosage: MORNING
     Route: 065
  9. ATORVASTATIN [Concomitant]
     Active Substance: ATORVASTATIN
     Indication: Blood cholesterol abnormal
     Dosage: BEEN ON FOR AT LEAST 4 YEARS AT BEDTIME
     Route: 065
  10. FENOFIBRATE [Concomitant]
     Active Substance: FENOFIBRATE
     Indication: Blood cholesterol abnormal
     Dosage: IN THE MORNING
     Route: 065
  11. ASPIRIN [Concomitant]
     Active Substance: ASPIRIN
     Indication: Product used for unknown indication
     Dosage: 0.82 U
     Route: 065
  12. DICLOFENAC [Concomitant]
     Active Substance: DICLOFENAC
     Indication: Pain
     Route: 065
  13. FLONASE [Concomitant]
     Active Substance: FLUTICASONE PROPIONATE
     Indication: Product used for unknown indication
     Dosage: ONE SPRAY IN EACH NOSTRIL TWO TIMES DAILY AS NEEDED
     Route: 045
  14. PROCARDIA [Concomitant]
     Active Substance: NIFEDIPINE
     Indication: Cardiac disorder
     Dosage: BEEN TAKING IT AT LEAST 4 YEARS
     Route: 065
  15. MELATONIN [Concomitant]
     Active Substance: MELATONIN
     Indication: Sleep disorder
     Dosage: 5MG AT 5PM AND THEN 5MG AT 10PM
     Route: 065
  16. BUSPIRONE [Suspect]
     Active Substance: BUSPIRONE HYDROCHLORIDE
     Indication: Product used for unknown indication
     Dosage: TOOK 2 PILLS
     Route: 065

REACTIONS (20)
  - Abdominal mass [Unknown]
  - Product dispensing error [Unknown]
  - Serotonin syndrome [Unknown]
  - Chest discomfort [Unknown]
  - Dyspnoea [Unknown]
  - Constipation [Unknown]
  - Cardiac disorder [Unknown]
  - Hypokinesia [Unknown]
  - Memory impairment [Unknown]
  - Blood glucose increased [Recovering/Resolving]
  - Extra dose administered [Unknown]
  - Weight increased [Unknown]
  - Dyspepsia [Unknown]
  - Confusional state [Unknown]
  - Seizure [Unknown]
  - Gait disturbance [Unknown]
  - Hyperhidrosis [Unknown]
  - Diarrhoea [Unknown]
  - Chest pain [Unknown]
  - Oesophageal dilatation [Unknown]

NARRATIVE: CASE EVENT DATE: 20230101
